FAERS Safety Report 4283504-4 (Version None)
Quarter: 2004Q1

REPORT INFORMATION
  Report Type: 
  Country: None (occurrence: None)
  Receive Date: 20040202
  Receipt Date: 20031006
  Transmission Date: 20041129
  Serious: No
  Sender: FDA-Public Use
  Company Number: US-BRISTOL-MYERS SQUIBB COMPANY-12402616

PATIENT
  Age: 92 Year
  Sex: Male
  Weight: 86 kg

DRUGS (3)
  1. ULTRAVATE [Suspect]
     Indication: RASH
     Dosage: DOSE VALUE: THIN COAT
     Route: 061
     Dates: start: 20030501
  2. LOTREL [Concomitant]
  3. VITAMIN E [Concomitant]

REACTIONS (1)
  - RASH MACULAR [None]
